FAERS Safety Report 5532821-6 (Version None)
Quarter: 2007Q4

REPORT INFORMATION
  Report Type: 
  Country: None (occurrence: None)
  Receive Date: 20071130
  Receipt Date: 20071130
  Transmission Date: 20080405
  Serious: No
  Sender: FDA-Public Use
  Company Number: None

PATIENT
  Age: 43 Year
  Sex: Male
  Weight: 108.8633 kg

DRUGS (1)
  1. LEVAQUIN [Suspect]
     Indication: GASTROENTERITIS
     Dosage: 1 DAILY PO
     Route: 048
     Dates: start: 20060825, end: 20060902

REACTIONS (23)
  - AGITATION [None]
  - ANXIETY [None]
  - CHILLS [None]
  - DYSAESTHESIA [None]
  - DYSKINESIA [None]
  - FATIGUE [None]
  - HEPATIC ENZYME INCREASED [None]
  - HYPERHIDROSIS [None]
  - INSOMNIA [None]
  - INTRACRANIAL PRESSURE INCREASED [None]
  - MUSCULOSKELETAL PAIN [None]
  - NERVOUS SYSTEM DISORDER [None]
  - NEURALGIA [None]
  - NEUROPATHY [None]
  - PARAESTHESIA [None]
  - POLYNEUROPATHY [None]
  - RESTLESSNESS [None]
  - SKIN BURNING SENSATION [None]
  - TACHYCARDIA [None]
  - TEMPERATURE REGULATION DISORDER [None]
  - TENDON DISORDER [None]
  - TESTICULAR FAILURE [None]
  - WEIGHT DECREASED [None]
